FAERS Safety Report 9662405 (Version 1)
Quarter: 2013Q4

REPORT INFORMATION
  Report Type: Spontaneous
  Country: US (occurrence: US)
  Receive Date: 20131031
  Receipt Date: 20131031
  Transmission Date: 20140711
  Serious: No
  Sender: FDA-Public Use
  Company Number: US-PURDUE-USA-2011-0071374

PATIENT
  Sex: Female

DRUGS (2)
  1. OXYCONTIN (NDA 22-272) [Suspect]
     Indication: ANALGESIC THERAPY
     Dosage: 560 MG, BID
     Dates: start: 201010
  2. OXYCONTIN (NDA 22-272) [Suspect]
     Dosage: 640 MG, PM

REACTIONS (2)
  - Drug effect delayed [Not Recovered/Not Resolved]
  - Vomiting [Not Recovered/Not Resolved]
